FAERS Safety Report 19001599 (Version 1)
Quarter: 2021Q1

REPORT INFORMATION
  Report Type: Spontaneous
  Country: US (occurrence: US)
  Receive Date: 20210312
  Receipt Date: 20210312
  Transmission Date: 20210420
  Serious: No
  Sender: FDA-Public Use
  Company Number: US-FARMAPROD-202010-1443

PATIENT
  Sex: Female
  Weight: 69.01 kg

DRUGS (21)
  1. OXERVATE [Suspect]
     Active Substance: CENEGERMIN-BKBJ
     Route: 047
     Dates: start: 20201029
  2. GABAPENTIN. [Concomitant]
     Active Substance: GABAPENTIN
  3. REFRESH TEARS [Concomitant]
     Active Substance: CARBOXYMETHYLCELLULOSE SODIUM
  4. PREMARIN [Concomitant]
     Active Substance: ESTROGENS, CONJUGATED
  5. NITROGLYCERIN. [Concomitant]
     Active Substance: NITROGLYCERIN
     Dosage: SUBLINGUAL TABLET
     Route: 060
  6. LANTUS SOLOSTAR [Concomitant]
     Active Substance: INSULIN GLARGINE
  7. ZOFRAN [Concomitant]
     Active Substance: ONDANSETRON HYDROCHLORIDE
  8. REFRESH OPTIVE MEGA?3 [Concomitant]
     Active Substance: CARBOXYMETHYLCELLULOSE SODIUM\GLYCERIN\POLYSORBATE 80
  9. OXERVATE [Suspect]
     Active Substance: CENEGERMIN-BKBJ
     Indication: NEUROTROPHIC KERATOPATHY
     Route: 047
     Dates: start: 20200520, end: 20200716
  10. FLUTICASONE PROPIONATE. [Concomitant]
     Active Substance: FLUTICASONE PROPIONATE
  11. ROSUVASTATIN CALCIUM. [Concomitant]
     Active Substance: ROSUVASTATIN CALCIUM
  12. ASPIRINE [Concomitant]
     Active Substance: ASPIRIN
  13. FAMOTIDINE. [Concomitant]
     Active Substance: FAMOTIDINE
     Dosage: VIAL
  14. POTASSIUM CHLORIDE. [Concomitant]
     Active Substance: POTASSIUM CHLORIDE
  15. METAXALONE. [Concomitant]
     Active Substance: METAXALONE
  16. TORSEMIDE. [Concomitant]
     Active Substance: TORSEMIDE
  17. HUMALOG [Concomitant]
     Active Substance: INSULIN LISPRO
     Dosage: 100/ML VIAL
  18. ERYTHROMYCIN. [Concomitant]
     Active Substance: ERYTHROMYCIN
  19. LYRICA [Concomitant]
     Active Substance: PREGABALIN
  20. BUPROPION XL [Concomitant]
     Active Substance: BUPROPION
     Dosage: EXTENDED RELEASE TABLET
  21. XIIDRA [Concomitant]
     Active Substance: LIFITEGRAST
     Dosage: DROPERETTE

REACTIONS (1)
  - Disease recurrence [Not Recovered/Not Resolved]
